FAERS Safety Report 17723866 (Version 1)
Quarter: 2020Q2

REPORT INFORMATION
  Report Type: Spontaneous
  Country: MX (occurrence: MX)
  Receive Date: 20200429
  Receipt Date: 20200429
  Transmission Date: 20200714
  Serious: Yes (Disabling)
  Sender: FDA-Public Use
  Company Number: NVSC2020MX066391

PATIENT
  Age: 50 Year
  Sex: Male
  Weight: 65 kg

DRUGS (2)
  1. GLIVEC [Suspect]
     Active Substance: IMATINIB MESYLATE
     Dosage: 600 MG (AS REPORTED 100 MG)
     Route: 048
     Dates: start: 200910, end: 20200421
  2. GLIVEC [Suspect]
     Active Substance: IMATINIB MESYLATE
     Indication: CHRONIC MYELOID LEUKAEMIA
     Dosage: 100 MG (8, 100 MG)
     Route: 065

REACTIONS (6)
  - Epistaxis [Recovered/Resolved]
  - Platelet count decreased [Unknown]
  - Toxicity to various agents [Unknown]
  - Walking disability [Recovered/Resolved]
  - Off label use [Unknown]
  - Liver disorder [Not Recovered/Not Resolved]

NARRATIVE: CASE EVENT DATE: 202002
